FAERS Safety Report 12761246 (Version 1)
Quarter: 2016Q3

REPORT INFORMATION
  Report Type: Spontaneous
  Country: US (occurrence: US)
  Receive Date: 20160920
  Receipt Date: 20160920
  Transmission Date: 20161109
  Serious: No
  Sender: FDA-Public Use
  Company Number: US-TEVA-626169USA

PATIENT
  Sex: Male

DRUGS (3)
  1. CARVEDILOL. [Suspect]
     Active Substance: CARVEDILOL
     Indication: STENT PLACEMENT
     Dates: start: 201509
  2. ELIQUIS [Concomitant]
     Active Substance: APIXABAN
     Dates: end: 20160113
  3. COUMADIN [Concomitant]
     Active Substance: WARFARIN SODIUM
     Dates: start: 201509

REACTIONS (7)
  - Thinking abnormal [Unknown]
  - Feeling abnormal [Unknown]
  - Dizziness [Unknown]
  - Strabismus [Unknown]
  - Chest discomfort [Unknown]
  - Crying [Unknown]
  - Blood pressure increased [Unknown]
